FAERS Safety Report 4692358-3 (Version None)
Quarter: 2005Q2

REPORT INFORMATION
  Report Type: 
  Country: None (occurrence: None)
  Receive Date: 20050614
  Receipt Date: 20050601
  Transmission Date: 20051028
  Serious: Yes (Life-Threatening, Hospitalization)
  Sender: FDA-Public Use
  Company Number: RENA-11399

PATIENT
  Age: 70 Year
  Sex: Female

DRUGS (9)
  1. PHOSBLOCK [Suspect]
     Indication: HYPERPHOSPHATAEMIA
     Dosage: 6 G DAILY PO
     Route: 048
     Dates: start: 20050101, end: 20050422
  2. CANDESARTAN CILEXETIL [Concomitant]
  3. AMEZINIUM   METILSULFATE [Concomitant]
  4. CALCIUM POLYSTYRENE SULFONATE [Concomitant]
  5. TRIAZOLAM [Concomitant]
  6. AMLODIPINE BESYLATE [Concomitant]
  7. FAMOTIDINE [Concomitant]
  8. SENNOSIDE [Concomitant]
  9. REBAMIPIDE [Concomitant]

REACTIONS (1)
  - LARGE INTESTINE PERFORATION [None]
